FAERS Safety Report 7787143-X (Version None)
Quarter: 2011Q3

REPORT INFORMATION
  Report Type: 
  Country: None (occurrence: None)
  Receive Date: 20110929
  Receipt Date: 20110511
  Transmission Date: 20111222
  Serious: No
  Sender: FDA-Public Use
  Company Number: US-BAYER-2011-042028

PATIENT
  Age: 50 Year
  Sex: Male
  Weight: 102 kg

DRUGS (4)
  1. CAMPHO-PHENIQUE ANTISEPTIC LIQUID [Suspect]
     Indication: TOOTHACHE
     Dosage: 1 U, PRN
     Route: 048
     Dates: start: 20110511
  2. ALEVE (CAPLET) [Suspect]
     Indication: TOOTHACHE
     Dosage: 2 DF, BID
     Route: 048
  3. PERCOCET [Concomitant]
     Dosage: 1 U, TID
  4. METHADONE HCL [Concomitant]
     Dosage: 1 U, TID

REACTIONS (2)
  - DRUG INEFFECTIVE [None]
  - HYPOAESTHESIA ORAL [None]
